FAERS Safety Report 12043897 (Version 63)
Quarter: 2021Q4

REPORT INFORMATION
  Report Type: Other
  Country: CA (occurrence: None)
  Receive Date: 20160208
  Receipt Date: 20211113
  Transmission Date: 20220303
  Serious: Yes (Hospitalization, Other)
  Sender: FDA-Public Use
  Company Number: CA-ROCHE-1693489

PATIENT
  Sex: Female
  Weight: 67 kg

DRUGS (29)
  1. ACTEMRA [Suspect]
     Active Substance: TOCILIZUMAB
     Indication: Rheumatoid arthritis
     Route: 042
     Dates: start: 20151210, end: 20161024
  2. ACTEMRA [Suspect]
     Active Substance: TOCILIZUMAB
     Route: 042
     Dates: start: 20160926
  3. ACTEMRA [Suspect]
     Active Substance: TOCILIZUMAB
     Route: 042
     Dates: start: 20161024
  4. ACTEMRA [Suspect]
     Active Substance: TOCILIZUMAB
     Dosage: INFUSION NUMBER: 19
     Route: 042
     Dates: start: 20171023
  5. ACTEMRA [Suspect]
     Active Substance: TOCILIZUMAB
     Dosage: INFUSION 17
     Route: 042
     Dates: start: 20170828
  6. ACTEMRA [Suspect]
     Active Substance: TOCILIZUMAB
     Dosage: INITIAL DOSING NOT REPORTED
     Route: 042
  7. ACTEMRA [Suspect]
     Active Substance: TOCILIZUMAB
     Route: 042
     Dates: start: 20180214
  8. ACTEMRA [Suspect]
     Active Substance: TOCILIZUMAB
     Route: 042
     Dates: start: 20180314
  9. ACTEMRA [Suspect]
     Active Substance: TOCILIZUMAB
     Route: 042
     Dates: start: 20180509
  10. ACTEMRA [Suspect]
     Active Substance: TOCILIZUMAB
     Dosage: INFUSION NO. 27
     Route: 042
     Dates: start: 20180606
  11. ACTEMRA [Suspect]
     Active Substance: TOCILIZUMAB
     Route: 042
     Dates: start: 20170623
  12. ACTEMRA [Suspect]
     Active Substance: TOCILIZUMAB
     Dosage: ONGOING
     Route: 042
     Dates: start: 20180814
  13. ACTEMRA [Suspect]
     Active Substance: TOCILIZUMAB
     Route: 042
     Dates: start: 20150821
  14. ACTEMRA [Suspect]
     Active Substance: TOCILIZUMAB
     Route: 042
     Dates: start: 20161219, end: 20170313
  15. ACTEMRA [Suspect]
     Active Substance: TOCILIZUMAB
     Route: 042
     Dates: start: 20170925, end: 20180704
  16. ACTEMRA [Suspect]
     Active Substance: TOCILIZUMAB
     Dosage: NO PIRS RECEIVED BETWEEN 16-JAN-2017 TO 06-JUN-2018 (EXCEPT FOR 25-SEP-2017). DOSAGE NOTED ACCORDING
     Route: 042
     Dates: start: 20161219, end: 20170313
  17. ACTEMRA [Suspect]
     Active Substance: TOCILIZUMAB
     Dosage: NO PIRS RECEIVED BETWEEN 16-JAN-2017 TO 06-JUN-2018 (EXCEPT FOR 25-SEP-2017). DOSAGE NOTED ACCORDING
     Route: 042
     Dates: start: 20170705, end: 20180704
  18. METFORMIN [Suspect]
     Active Substance: METFORMIN HYDROCHLORIDE
     Indication: Diabetes mellitus
     Route: 048
     Dates: end: 2016
  19. NAPROXEN [Suspect]
     Active Substance: NAPROXEN
     Indication: Product used for unknown indication
     Route: 065
  20. NAPROXEN [Suspect]
     Active Substance: NAPROXEN
     Route: 065
  21. METHOTREXATE [Concomitant]
     Active Substance: METHOTREXATE
     Dosage: ONGOING
     Route: 058
  22. PREDNISONE [Concomitant]
     Active Substance: PREDNISONE
     Route: 048
  23. OMEPRAZOLE [Concomitant]
     Active Substance: OMEPRAZOLE
  24. ALENDRONATE [Concomitant]
     Active Substance: ALENDRONATE SODIUM
  25. ACETAMINOPHEN [Concomitant]
     Active Substance: ACETAMINOPHEN
     Route: 048
  26. PLAQUENIL [Concomitant]
     Active Substance: HYDROXYCHLOROQUINE SULFATE
  27. LEUCOVORIN [Concomitant]
     Active Substance: LEUCOVORIN
  28. CELEBREX [Concomitant]
     Active Substance: CELECOXIB
     Route: 065
     Dates: start: 20180610
  29. CALCIUM [Concomitant]
     Active Substance: CALCIUM

REACTIONS (64)
  - Road traffic accident [Unknown]
  - Fibromyalgia [Unknown]
  - Gastrointestinal disorder [Recovered/Resolved]
  - Infusion related reaction [Unknown]
  - Diabetes mellitus [Not Recovered/Not Resolved]
  - Swelling face [Unknown]
  - Upper limb fracture [Unknown]
  - Blood pressure diastolic abnormal [Unknown]
  - Blood pressure diastolic decreased [Unknown]
  - Malaise [Unknown]
  - Pain in jaw [Unknown]
  - Ligament sprain [Unknown]
  - Fall [Unknown]
  - Disability assessment scale score increased [Not Recovered/Not Resolved]
  - Arthralgia [Not Recovered/Not Resolved]
  - Diarrhoea [Not Recovered/Not Resolved]
  - Abdominal pain upper [Not Recovered/Not Resolved]
  - Pruritus [Not Recovered/Not Resolved]
  - Fatigue [Not Recovered/Not Resolved]
  - Abdominal pain [Recovered/Resolved]
  - Dyspnoea [Unknown]
  - Arthralgia [Unknown]
  - Joint swelling [Unknown]
  - Renal pain [Unknown]
  - Abdominal pain upper [Unknown]
  - Gait disturbance [Not Recovered/Not Resolved]
  - Weight decreased [Not Recovered/Not Resolved]
  - Arthralgia [Not Recovered/Not Resolved]
  - Rheumatoid arthritis [Recovering/Resolving]
  - Bronchitis [Unknown]
  - Oropharyngeal pain [Not Recovered/Not Resolved]
  - Cough [Not Recovered/Not Resolved]
  - Arthralgia [Unknown]
  - Blood pressure systolic increased [Unknown]
  - Pain [Not Recovered/Not Resolved]
  - Hot flush [Unknown]
  - Pain in extremity [Recovered/Resolved]
  - Arthralgia [Recovered/Resolved]
  - Arthritis [Unknown]
  - Oral pain [Not Recovered/Not Resolved]
  - Tooth fracture [Unknown]
  - Diarrhoea [Not Recovered/Not Resolved]
  - Headache [Unknown]
  - Stress [Unknown]
  - Fatigue [Recovering/Resolving]
  - Anxiety [Unknown]
  - Poor quality sleep [Unknown]
  - Nausea [Unknown]
  - Contusion [Unknown]
  - Pain [Unknown]
  - Infusion related reaction [Recovering/Resolving]
  - Blood pressure diastolic increased [Unknown]
  - Poor venous access [Unknown]
  - Influenza [Recovered/Resolved]
  - Headache [Unknown]
  - Vomiting [Unknown]
  - Nausea [Unknown]
  - Blood pressure fluctuation [Unknown]
  - Heart rate increased [Unknown]
  - Body temperature increased [Unknown]
  - Tooth disorder [Unknown]
  - Infection [Unknown]
  - Dizziness [Unknown]
  - Arthralgia [Not Recovered/Not Resolved]

NARRATIVE: CASE EVENT DATE: 20160101
